FAERS Safety Report 7675957-6 (Version None)
Quarter: 2011Q3

REPORT INFORMATION
  Report Type: 
  Country: None (occurrence: None)
  Receive Date: 20110811
  Receipt Date: 20110808
  Transmission Date: 20111222
  Serious: No
  Sender: FDA-Public Use
  Company Number: US-BIOGENIDEC-2011BI001767

PATIENT
  Sex: Female

DRUGS (1)
  1. TYSABRI [Suspect]
     Indication: MULTIPLE SCLEROSIS
     Route: 042
     Dates: start: 20100428

REACTIONS (10)
  - INFECTION [None]
  - CONJUNCTIVITIS INFECTIVE [None]
  - LARYNGITIS [None]
  - PHARYNGITIS STREPTOCOCCAL [None]
  - BRONCHITIS [None]
  - FATIGUE [None]
  - NASOPHARYNGITIS [None]
  - DECREASED IMMUNE RESPONSIVENESS [None]
  - COGNITIVE DISORDER [None]
  - SINUSITIS [None]
